FAERS Safety Report 15697812 (Version 1)
Quarter: 2018Q4

REPORT INFORMATION
  Report Type: Spontaneous
  Country: US (occurrence: US)
  Receive Date: 20181126
  Receipt Date: 20181126
  Transmission Date: 20190205
  Serious: No
  Sender: FDA-Public Use
  Company Number: None

PATIENT
  Age: 57 Year
  Sex: Female
  Weight: 129.73 kg

DRUGS (1)
  1. RASUVO [Suspect]
     Active Substance: METHOTREXATE SODIUM
     Indication: SUBACUTE CUTANEOUS LUPUS ERYTHEMATOSUS
     Dosage: INJECT 15MG (0.3ML) SUBCUTANEOUSLY  ONCE WEEKLY ON THE SAME DAY EACH WEEK AS DIRECTED AS DIRECTED??
     Route: 058

REACTIONS (1)
  - Product use issue [None]
